FAERS Safety Report 17838009 (Version 6)
Quarter: 2020Q4

REPORT INFORMATION
  Report Type: Report from Study
  Country: US (occurrence: US)
  Receive Date: 20200528
  Receipt Date: 20201119
  Transmission Date: 20210113
  Serious: Yes (Other)
  Sender: FDA-Public Use
  Company Number: NVSC2020US147467

PATIENT
  Sex: Male

DRUGS (3)
  1. ENTRESTO [Suspect]
     Active Substance: SACUBITRIL\VALSARTAN
     Dosage: 50 MG (24/26 MG), BID
     Route: 048
  2. ENTRESTO [Suspect]
     Active Substance: SACUBITRIL\VALSARTAN
     Indication: CARDIAC FAILURE
     Dosage: 50 MG (24/26 MG), BID
     Route: 048
  3. ENTRESTO [Suspect]
     Active Substance: SACUBITRIL\VALSARTAN
     Dosage: UNK UNK, UNKNOWN (DOSE INCRESED)
     Route: 048

REACTIONS (13)
  - Blood pressure decreased [Unknown]
  - Weight decreased [Unknown]
  - Arthritis [Unknown]
  - Asthenia [Unknown]
  - Neuropathy peripheral [Unknown]
  - Tremor [Unknown]
  - Fatigue [Unknown]
  - Ejection fraction decreased [Unknown]
  - Hypoaesthesia [Unknown]
  - Pain [Unknown]
  - Pain in extremity [Unknown]
  - Back pain [Unknown]
  - Decreased activity [Unknown]
